FAERS Safety Report 6910833-5 (Version None)
Quarter: 2010Q3

REPORT INFORMATION
  Report Type: 
  Country: None (occurrence: None)
  Receive Date: 20100716
  Receipt Date: 20090720
  Transmission Date: 20110219
  Serious: Yes (Other)
  Sender: FDA-Public Use
  Company Number: 2009224814

PATIENT
  Age: 60 Year
  Sex: Female
  Weight: 65.8 kg

DRUGS (5)
  1. CELEBREX [Suspect]
     Indication: JOINT SPRAIN
     Dosage: 200 MG, 1X/DAY
     Dates: start: 20090605, end: 20090607
  2. CELEBREX [Suspect]
     Indication: PAIN
     Dosage: 200 MG, 1X/DAY
     Dates: start: 20090605, end: 20090607
  3. ATENOLOL/CHLORTHALIDONE (ATENOLOL, CHLORTALIDONE) [Concomitant]
  4. PRAVASTATIN [Concomitant]
  5. PAROXETINE HCL [Concomitant]

REACTIONS (4)
  - ANXIETY [None]
  - OROPHARYNGEAL BLISTERING [None]
  - PRURITUS [None]
  - RASH [None]
